FAERS Safety Report 11543530 (Version 6)
Quarter: 2016Q4

REPORT INFORMATION
  Report Type: Report from Study
  Country: BR (occurrence: BR)
  Receive Date: 20150923
  Receipt Date: 20161027
  Transmission Date: 20170206
  Serious: Yes (Hospitalization)
  Sender: FDA-Public Use
  Company Number: PHHY2015BR114199

PATIENT
  Age: 64 Year
  Sex: Female
  Weight: 67 kg

DRUGS (3)
  1. EXJADE [Suspect]
     Active Substance: DEFERASIROX
     Dosage: UNK
     Route: 048
     Dates: start: 201607, end: 201609
  2. EXJADE [Suspect]
     Active Substance: DEFERASIROX
     Indication: IRON OVERLOAD
     Dosage: 2 DF, UNK
     Route: 048
     Dates: start: 2015
  3. EXJADE [Suspect]
     Active Substance: DEFERASIROX
     Dosage: 5 MG/KG, QD (1 DF OF 500 MG DAILY)
     Route: 048
     Dates: start: 20150316, end: 201509

REACTIONS (10)
  - Malaise [Recovering/Resolving]
  - Nausea [Recovering/Resolving]
  - Hepatomegaly [Unknown]
  - Vomiting [Unknown]
  - Serum ferritin decreased [Recovering/Resolving]
  - Dyspepsia [Unknown]
  - Serum ferritin increased [Unknown]
  - Labyrinthitis [Unknown]
  - Blood pressure decreased [Recovering/Resolving]
  - Abdominal pain upper [Unknown]

NARRATIVE: CASE EVENT DATE: 201508
